FAERS Safety Report 4577540-8 (Version None)
Quarter: 2005Q1

REPORT INFORMATION
  Report Type: 
  Country: None (occurrence: None)
  Receive Date: 20050208
  Receipt Date: 20050126
  Transmission Date: 20050727
  Serious: Yes (Hospitalization)
  Sender: FDA-Public Use
  Company Number: 2003GB00402

PATIENT
  Age: 68 Year
  Sex: Female
  Weight: 88 kg

DRUGS (12)
  1. ARIMIDEX [Suspect]
     Indication: BREAST CANCER
     Dosage: 1 MG QD PO
     Route: 048
     Dates: start: 19990106, end: 19990204
  2. CO-CODAMOL [Concomitant]
  3. EXEMESTANE [Concomitant]
  4. WARFARIN SODIUM [Concomitant]
  5. ATENOLOL [Concomitant]
  6. BENDROFLUAZIDE [Concomitant]
  7. CEPHRADINE [Concomitant]
  8. ACETAMINOPHEN [Concomitant]
  9. FERROGRAD [Concomitant]
  10. LACTULOSE [Concomitant]
  11. ANUSOL   /NET/ [Concomitant]
  12. KAPAKE [Concomitant]

REACTIONS (4)
  - ANAEMIA [None]
  - OSTEOARTHRITIS [None]
  - POST PROCEDURAL HAEMORRHAGE [None]
  - POSTOPERATIVE INFECTION [None]
